FAERS Safety Report 7218344-7 (Version None)
Quarter: 2011Q1

REPORT INFORMATION
  Report Type: 
  Country: None (occurrence: None)
  Receive Date: 20110110
  Receipt Date: 20110106
  Transmission Date: 20110831
  Serious: Yes (Hospitalization)
  Sender: FDA-Public Use
  Company Number: ES-PFIZER INC-2010177416

PATIENT
  Age: 65 Year
  Sex: Female

DRUGS (4)
  1. CLONAZEPAM [Concomitant]
     Dosage: UNK
  2. SERTRALINE HYDROCHLORIDE [Suspect]
     Dosage: UNK
  3. LEVETIRACETAM [Suspect]
     Indication: NEUROLOGICAL SYMPTOM
     Dosage: 250 MG EVERY 8 HOURS
     Route: 048
  4. ENALAPRIL MALEATE [Suspect]
     Dosage: UNK

REACTIONS (4)
  - INAPPROPRIATE ANTIDIURETIC HORMONE SECRETION [None]
  - CONFUSIONAL STATE [None]
  - SENSORY LOSS [None]
  - FALL [None]
